FAERS Safety Report 6675601-0 (Version None)
Quarter: 2010Q2

REPORT INFORMATION
  Report Type: 
  Country: None (occurrence: None)
  Receive Date: 20100409
  Receipt Date: 20100406
  Transmission Date: 20101027
  Serious: Yes (Hospitalization)
  Sender: FDA-Public Use
  Company Number: PHHO2010KR04352

PATIENT
  Sex: Male
  Weight: 63 kg

DRUGS (3)
  1. AFINITOR [Suspect]
     Indication: PHAEOCHROMOCYTOMA
     Dosage: 10 MG DAILY
     Route: 048
     Dates: start: 20100115, end: 20100315
  2. AFINITOR [Suspect]
     Dosage: UNK
     Route: 048
  3. MORPHINE [Suspect]

REACTIONS (11)
  - ABDOMINAL PAIN [None]
  - AGGRESSION [None]
  - ASTHENIA [None]
  - BLOOD PRESSURE ABNORMAL [None]
  - BODY TEMPERATURE INCREASED [None]
  - CONFUSIONAL STATE [None]
  - DELIRIUM [None]
  - LUNG CONSOLIDATION [None]
  - PNEUMONIA [None]
  - SEPTIC SHOCK [None]
  - VOMITING [None]
